FAERS Safety Report 5888226-1 (Version None)
Quarter: 2008Q3

REPORT INFORMATION
  Report Type: 
  Country: None (occurrence: None)
  Receive Date: 20080918
  Receipt Date: 20080910
  Transmission Date: 20090109
  Serious: Yes (Other)
  Sender: FDA-Public Use
  Company Number: GB-JNJFOC-20080902945

PATIENT
  Age: 62 Year
  Sex: Female

DRUGS (3)
  1. INVEGA [Suspect]
     Indication: DRUG USE FOR UNKNOWN INDICATION
     Route: 048
  2. PEG-INTRON [Suspect]
     Indication: HEPATITIS C
     Route: 058
  3. RIBAVIRIN [Suspect]
     Indication: HEPATITIS C
     Route: 048

REACTIONS (6)
  - DEPRESSION [None]
  - DYSGEUSIA [None]
  - INFLUENZA LIKE ILLNESS [None]
  - NAUSEA [None]
  - PYREXIA [None]
  - TRANSIENT ISCHAEMIC ATTACK [None]
